FAERS Safety Report 14641115 (Version 1)
Quarter: 2018Q1

REPORT INFORMATION
  Report Type: Spontaneous
  Country: None (occurrence: GB)
  Receive Date: 20180315
  Receipt Date: 20180315
  Transmission Date: 20180509
  Serious: Yes (Other)
  Sender: FDA-Public Use
  Company Number: GB-MEDAC PHARMA, INC.-2043817

PATIENT
  Age: 85 Year
  Sex: Male

DRUGS (2)
  1. METOJECT [Suspect]
     Active Substance: METHOTREXATE SODIUM
     Indication: PRODUCT USED FOR UNKNOWN INDICATION
     Route: 065
  2. BENEPALI [Suspect]
     Active Substance: ETANERCEPT
     Route: 065

REACTIONS (3)
  - Neoplasm malignant [Unknown]
  - Mass [Unknown]
  - Haemorrhage [Unknown]
